FAERS Safety Report 21394943 (Version 1)
Quarter: 2022Q3

REPORT INFORMATION
  Report Type: Report from Study
  Country: EG (occurrence: EG)
  Receive Date: 20220930
  Receipt Date: 20220930
  Transmission Date: 20221027
  Serious: Yes (Other)
  Sender: FDA-Public Use
  Company Number: EG-NOVARTISPH-NVSC2022EG213407

PATIENT
  Age: 64 Year
  Sex: Female

DRUGS (6)
  1. COSENTYX [Suspect]
     Active Substance: SECUKINUMAB
     Indication: Psoriasis
     Dosage: UNK
     Route: 058
  2. COSENTYX [Suspect]
     Active Substance: SECUKINUMAB
     Dosage: UNK (2  PREFILLED PEN EVERY 2 MONTHS AND NOW UPGRADED TO EVERY  MONTHS BASED ON HCP DECISION)
     Route: 058
     Dates: start: 2018
  3. COSENTYX [Suspect]
     Active Substance: SECUKINUMAB
     Dosage: 300 MG, QMO (2 PREFILLED PEN OF COSENTYX 150MG)
     Route: 058
     Dates: start: 20220919
  4. BISOPROLOL FUMARATE [Concomitant]
     Active Substance: BISOPROLOL FUMARATE
     Indication: Hypertension
     Dosage: 1 DF (5 MG) (STARTED 20 YEARS AGO ONGOING)
     Route: 065
  5. NORVASC [Concomitant]
     Active Substance: AMLODIPINE BESYLATE
     Indication: Hypertension
     Dosage: UNK
     Route: 065
     Dates: start: 202207
  6. LASIX [Concomitant]
     Active Substance: FUROSEMIDE
     Indication: Polyuria
     Dosage: 0.5 DF, QD (1/4 TABLET)
     Route: 065
     Dates: start: 20220801

REACTIONS (4)
  - Renal impairment [Recovered/Resolved]
  - Hepatic enzyme increased [Recovered/Resolved]
  - Hypoacusis [Unknown]
  - Product use issue [Recovered/Resolved]

NARRATIVE: CASE EVENT DATE: 20180101
